FAERS Safety Report 9569537 (Version 2)
Quarter: 2013Q3

REPORT INFORMATION
  Report Type: Spontaneous
  Country: US (occurrence: US)
  Receive Date: 20130930
  Receipt Date: 20130930
  Transmission Date: 20140515
  Serious: Yes (Other)
  Sender: FDA-Public Use
  Company Number: US-AMGEN-USASP2013023021

PATIENT
  Age: 56 Year
  Sex: Female
  Weight: 72.56 kg

DRUGS (13)
  1. ENBREL [Suspect]
     Indication: PSORIATIC ARTHROPATHY
     Dosage: 50 MG, QWK
     Route: 058
     Dates: start: 20130312, end: 20130709
  2. AMBIEN [Concomitant]
     Dosage: 5 MG, UNK
  3. PREDNISONE [Concomitant]
     Dosage: 1 MG, UNK
  4. VITAMIN D                          /00107901/ [Concomitant]
     Dosage: 1000 UNIT, UNK
  5. AMITIZA [Concomitant]
     Dosage: 24 MUG, UNK
  6. MORPHINE SULFATE [Concomitant]
     Dosage: 10 MG, UNK
  7. CALCIUM [Concomitant]
     Dosage: 500, UNK
  8. MAGNESIUM [Concomitant]
     Dosage: 400 MG, UNK
  9. MULTIVITAMINS, PLAIN [Concomitant]
     Dosage: UNK
  10. FOLIC ACID [Concomitant]
     Dosage: UNK
  11. CYMBALTA [Concomitant]
     Dosage: 20 MG, UNK
  12. SYNTHROID [Concomitant]
     Dosage: 112 MUG, UNK
  13. VALIUM [Concomitant]
     Dosage: 10 MG, UNK

REACTIONS (19)
  - Urinary tract infection [Recovered/Resolved]
  - Pneumonia [Recovered/Resolved]
  - Fatigue [Not Recovered/Not Resolved]
  - Pyrexia [Recovered/Resolved]
  - Asthenia [Unknown]
  - Headache [Recovered/Resolved]
  - Nail disorder [Recovered/Resolved]
  - Fluid retention [Unknown]
  - Skin injury [Not Recovered/Not Resolved]
  - Depression [Not Recovered/Not Resolved]
  - Back pain [Not Recovered/Not Resolved]
  - Pain in extremity [Not Recovered/Not Resolved]
  - Weight increased [Not Recovered/Not Resolved]
  - Throat irritation [Recovered/Resolved]
  - Arthropathy [Not Recovered/Not Resolved]
  - Influenza like illness [Recovered/Resolved]
  - Paronychia [Recovered/Resolved]
  - Psoriasis [Unknown]
  - Drug ineffective [Not Recovered/Not Resolved]
